FAERS Safety Report 4396673-2 (Version None)
Quarter: 2004Q3

REPORT INFORMATION
  Report Type: 
  Country: None (occurrence: None)
  Receive Date: 20040709
  Receipt Date: 20040701
  Transmission Date: 20050211
  Serious: Yes (Hospitalization, Other)
  Sender: FDA-Public Use
  Company Number: 2004221544JP

PATIENT
  Age: 35 Year
  Sex: Female

DRUGS (4)
  1. DESYREL [Suspect]
     Dosage: ORAL
     Route: 048
  2. ALPRAZOLAM [Suspect]
     Dosage: ORAL
     Route: 048
  3. ZOLPIDEM TARTRATE [Suspect]
     Dosage: ORAL
     Route: 048
  4. MILNACIPRAN (MILNACIPRAN) [Suspect]
     Dosage: ORAL
     Route: 048

REACTIONS (1)
  - SUBARACHNOID HAEMORRHAGE [None]
